FAERS Safety Report 6964766-9 (Version None)
Quarter: 2010Q3

REPORT INFORMATION
  Report Type: 
  Country: None (occurrence: None)
  Receive Date: 20100903
  Receipt Date: 20100812
  Transmission Date: 20110219
  Serious: No
  Sender: FDA-Public Use
  Company Number: US-PFIZER INC-2010079625

PATIENT
  Sex: Female

DRUGS (2)
  1. LYRICA [Suspect]
     Dosage: 100 MG, 3X/DAY
     Dates: start: 20070101
  2. XANAX [Suspect]
     Dosage: UNK

REACTIONS (3)
  - DRUG INEFFECTIVE [None]
  - PAIN [None]
  - WEIGHT INCREASED [None]
